FAERS Safety Report 18612564 (Version 3)
Quarter: 2023Q2

REPORT INFORMATION
  Report Type: Spontaneous
  Country: US (occurrence: US)
  Receive Date: 20201214
  Receipt Date: 20230605
  Transmission Date: 20230721
  Serious: Yes (Death, Other)
  Sender: FDA-Public Use
  Company Number: US-PURDUE PHARMA-USA-2020-0186312

PATIENT
  Age: 56 Year
  Sex: Male

DRUGS (1)
  1. OXYCONTIN [Suspect]
     Active Substance: OXYCODONE HYDROCHLORIDE
     Indication: Pain
     Dosage: 60-80 MG/DAY
     Route: 048
     Dates: start: 2008, end: 20130413

REACTIONS (6)
  - Death [Fatal]
  - Drug dependence [Unknown]
  - Depression [Unknown]
  - General physical health deterioration [Unknown]
  - Mental disorder [Unknown]
  - Impaired work ability [Unknown]

NARRATIVE: CASE EVENT DATE: 20130417
